FAERS Safety Report 21109653 (Version 3)
Quarter: 2022Q3

REPORT INFORMATION
  Report Type: Spontaneous
  Country: US (occurrence: US)
  Receive Date: 20220721
  Receipt Date: 20220805
  Transmission Date: 20221027
  Serious: Yes (Hospitalization)
  Sender: FDA-Public Use
  Company Number: US-TEVA-2022-US-2055549

PATIENT
  Age: 35 Year
  Sex: Male

DRUGS (11)
  1. PROPOFOL [Suspect]
     Active Substance: PROPOFOL
     Indication: Induction of anaesthesia
     Dosage: DAY 1
     Route: 065
  2. PROPOFOL [Suspect]
     Active Substance: PROPOFOL
     Dosage: DAY 2
     Route: 065
  3. PROPOFOL [Suspect]
     Active Substance: PROPOFOL
     Dosage: DAY 3
     Route: 065
  4. PROPOFOL [Suspect]
     Active Substance: PROPOFOL
     Dosage: DAY 4
     Route: 065
  5. PROPOFOL [Suspect]
     Active Substance: PROPOFOL
     Dosage: DAY 5
     Route: 065
  6. PROPOFOL [Suspect]
     Active Substance: PROPOFOL
     Dosage: DAY 6
     Route: 065
  7. PROPOFOL [Suspect]
     Active Substance: PROPOFOL
     Dosage: DAY 7
     Route: 065
  8. PROPOFOL [Suspect]
     Active Substance: PROPOFOL
     Dosage: DAY 8
     Route: 065
  9. PROPOFOL [Suspect]
     Active Substance: PROPOFOL
     Dosage: DAY 9
     Route: 065
  10. PROPOFOL [Suspect]
     Active Substance: PROPOFOL
     Dosage: DAY 10
     Route: 065
  11. PROPOFOL [Suspect]
     Active Substance: PROPOFOL
     Dosage: DAY 11
     Route: 065

REACTIONS (1)
  - Brugada syndrome [Recovered/Resolved]
